FAERS Safety Report 25439926 (Version 1)
Quarter: 2025Q2

REPORT INFORMATION
  Report Type: Spontaneous
  Country: AT (occurrence: None)
  Receive Date: 20250613
  Receipt Date: 20250613
  Transmission Date: 20250716
  Serious: Yes (Life-Threatening, Disabling)
  Sender: FDA-CTU
  Company Number: None

PATIENT
  Age: 36 Year
  Sex: Female
  Weight: 56 kg

DRUGS (1)
  1. SERTRALINE HYDROCHLORIDE [Suspect]
     Active Substance: SERTRALINE HYDROCHLORIDE
     Indication: Depression
     Route: 048
     Dates: start: 20160215

REACTIONS (11)
  - Withdrawal syndrome [None]
  - Loss of employment [None]
  - Insomnia [None]
  - Tinnitus [None]
  - Restlessness [None]
  - Akathisia [None]
  - Neuralgia [None]
  - Photophobia [None]
  - Hyperacusis [None]
  - Brain fog [None]
  - Loss of personal independence in daily activities [None]

NARRATIVE: CASE EVENT DATE: 20231023
